FAERS Safety Report 25662584 (Version 3)
Quarter: 2025Q4

REPORT INFORMATION
  Report Type: Spontaneous
  Country: CA (occurrence: CA)
  Receive Date: 20250810
  Receipt Date: 20251015
  Transmission Date: 20260118
  Serious: Yes (Hospitalization, Other)
  Sender: CELLTRION
  Company Number: CA-CELLTRION INC.-2025CA019922

PATIENT

DRUGS (16)
  1. INFLIXIMAB [Suspect]
     Active Substance: INFLIXIMAB
     Indication: Psoriatic arthropathy
     Dosage: 350 MG EVERY 8 WEEKS
     Route: 042
     Dates: start: 20250606
  2. INFLIXIMAB [Suspect]
     Active Substance: INFLIXIMAB
     Dosage: UNK
     Route: 042
     Dates: start: 20250621
  3. INFLIXIMAB [Suspect]
     Active Substance: INFLIXIMAB
     Dosage: LAST INDUCTION DOSE
     Route: 042
     Dates: start: 20250801
  4. INFLIXIMAB [Suspect]
     Active Substance: INFLIXIMAB
     Dosage: 350 MG EVERY 8 WEEKS
     Route: 042
     Dates: start: 20250606
  5. INFLIXIMAB [Suspect]
     Active Substance: INFLIXIMAB
     Dosage: UNK
     Dates: start: 20251006
  6. HYDROXYCHLOROQUINE [Concomitant]
     Active Substance: HYDROXYCHLOROQUINE
     Dosage: 300 MG
  7. METHOTREXATE [Concomitant]
     Active Substance: METHOTREXATE
     Dosage: 25 MG
     Dates: start: 2010
  8. PREDNISONE [Concomitant]
     Active Substance: PREDNISONE
     Dosage: 13 MG
     Dates: start: 2008
  9. BIMEKIZUMAB [Concomitant]
     Active Substance: BIMEKIZUMAB
  10. GABAPENTIN [Concomitant]
     Active Substance: GABAPENTIN
     Dosage: 600 MG
  11. ESTROGENS\PROGESTERONE [Concomitant]
     Active Substance: ESTROGENS\PROGESTERONE
     Dosage: 200 MG
  12. FOLIC ACID [Concomitant]
     Active Substance: FOLIC ACID
     Dosage: 5 MG
  13. NALTREXONE [Concomitant]
     Active Substance: NALTREXONE
     Dosage: 4.5 MG
  14. PANTOPRAZOLE [Concomitant]
     Active Substance: PANTOPRAZOLE
     Dosage: 40 MG EVERY 3 DAYS
  15. DIVIGEL [Concomitant]
     Active Substance: ESTRADIOL
     Dosage: 0.5 MG
  16. BIMEKIZUMAB [Concomitant]
     Active Substance: BIMEKIZUMAB
     Dosage: 160 MG
     Route: 065

REACTIONS (4)
  - Knee arthroplasty [Unknown]
  - Inappropriate schedule of product administration [Unknown]
  - Intentional dose omission [Unknown]
  - Therapy interrupted [Unknown]

NARRATIVE: CASE EVENT DATE: 20250620
